FAERS Safety Report 22218795 (Version 11)
Quarter: 2024Q4

REPORT INFORMATION
  Report Type: Report from Study
  Country: CA (occurrence: CA)
  Receive Date: 20230417
  Receipt Date: 20241220
  Transmission Date: 20250115
  Serious: Yes (Hospitalization, Other)
  Sender: OTSUKA
  Company Number: CA-OTSUKA-2023_009673

PATIENT
  Sex: Male

DRUGS (1)
  1. ARIPIPRAZOLE [Suspect]
     Active Substance: ARIPIPRAZOLE
     Indication: Product used for unknown indication
     Dosage: 400 MG, EVERY 4 WEEKS/ EVERY 28 DAYS
     Route: 030

REACTIONS (7)
  - Renal failure [Unknown]
  - Haemoglobin decreased [Unknown]
  - Insomnia [Unknown]
  - Poor personal hygiene [Unknown]
  - Inappropriate schedule of product administration [Unknown]
  - Product dose omission issue [Unknown]
  - Product availability issue [Unknown]
